FAERS Safety Report 4608603-6 (Version None)
Quarter: 2005Q1

REPORT INFORMATION
  Report Type: 
  Country: None (occurrence: None)
  Receive Date: 20050311
  Receipt Date: 20050225
  Transmission Date: 20050727
  Serious: Yes (Hospitalization)
  Sender: FDA-Public Use
  Company Number: 2000-BP-01662

PATIENT
  Age: 36 Year
  Sex: Male
  Weight: 52 kg

DRUGS (4)
  1. VIRAMUNE [Suspect]
     Indication: HIV INFECTION
     Dosage: 400 (200 MG, 200 MG BID), PO
     Route: 048
     Dates: start: 19990918, end: 20000407
  2. EMTRICITABINE (BLIND) [Concomitant]
  3. LAMIVUDINE (BLIND) [Concomitant]
  4. STAVUDINE [Concomitant]

REACTIONS (7)
  - ABDOMINAL PAIN UPPER [None]
  - CHOLECYSTITIS [None]
  - CHOLELITHIASIS [None]
  - HEPATIC FIBROSIS [None]
  - HIV TEST POSITIVE [None]
  - NAUSEA [None]
  - VOMITING [None]
